FAERS Safety Report 18565678 (Version 3)
Quarter: 2021Q4

REPORT INFORMATION
  Report Type: Report from Study
  Country: US (occurrence: None)
  Receive Date: 20201201
  Receipt Date: 20211126
  Transmission Date: 20220303
  Serious: Yes (Hospitalization, Other)
  Sender: FDA-Public Use
  Company Number: 2020SF41215

PATIENT
  Age: 71 Year
  Sex: Female
  Weight: 22.9 kg

DRUGS (5)
  1. TAGRISSO [Suspect]
     Active Substance: OSIMERTINIB
     Indication: Non-small cell lung cancer
     Route: 048
     Dates: start: 20200915, end: 20201030
  2. OSIMERTINIB [Suspect]
     Active Substance: OSIMERTINIB
     Dosage: UNKNOWN
     Route: 048
  3. DEXIMETHISONE [Concomitant]
     Indication: Cerebral disorder
     Dates: start: 20200801, end: 20200925
  4. LEVITRACIN [Concomitant]
     Indication: Seizure
     Route: 065
     Dates: start: 20200811
  5. PANTOPRAZOLE [Concomitant]
     Active Substance: PANTOPRAZOLE
     Indication: Gastrooesophageal reflux disease
     Route: 065
     Dates: start: 20200811

REACTIONS (5)
  - Drug-induced liver injury [Recovering/Resolving]
  - Jaundice [Recovered/Resolved]
  - Liver disorder [Recovering/Resolving]
  - Faeces discoloured [Recovered/Resolved]
  - Pruritus [Unknown]

NARRATIVE: CASE EVENT DATE: 20201006
